FAERS Safety Report 14739860 (Version 10)
Quarter: 2019Q4

REPORT INFORMATION
  Report Type: Spontaneous
  Country: US (occurrence: US)
  Receive Date: 20180410
  Receipt Date: 20191223
  Transmission Date: 20200122
  Serious: Yes (Hospitalization, Other)
  Sender: FDA-Public Use
  Company Number: US-PFIZER INC-2018146068

PATIENT
  Age: 68 Year
  Sex: Female
  Weight: 128 kg

DRUGS (5)
  1. LYRICA [Suspect]
     Active Substance: PREGABALIN
     Indication: DIABETIC NEUROPATHY
     Dosage: 100 MG, FOUR TIMES A DAY
     Route: 048
     Dates: start: 2013
  2. LYRICA [Suspect]
     Active Substance: PREGABALIN
     Indication: ARTHRALGIA
     Dosage: 100 MG, FOUR TIMES A DAY
  3. LYRICA [Suspect]
     Active Substance: PREGABALIN
     Indication: SPINAL OSTEOARTHRITIS
     Dosage: 100 MG, FOUR TIMES A DAY (TAKE 1 CAPSULE FOUR TIMES A DAY FOR 30 DAYS)
     Route: 048
     Dates: start: 20191016
  4. LYRICA [Suspect]
     Active Substance: PREGABALIN
     Indication: PAIN
     Dosage: 100 MG, FOUR TIMES A DAY  (TWO 50 MG)
     Route: 048
     Dates: start: 201804, end: 2018
  5. LYRICA [Suspect]
     Active Substance: PREGABALIN
     Indication: DRUG DEPENDENCE
     Dosage: 100 MG, FOUR TIMES A DAY [30 DAY SUPPLY]
     Route: 048
     Dates: start: 20180619

REACTIONS (5)
  - Abscess intestinal [Recovered/Resolved]
  - Diverticulitis [Recovered/Resolved]
  - Infected skin ulcer [Recovered/Resolved]
  - Malaise [Unknown]
  - Diabetic ulcer [Recovered/Resolved]

NARRATIVE: CASE EVENT DATE: 201804
